FAERS Safety Report 19251354 (Version 1)
Quarter: 2021Q2

REPORT INFORMATION
  Report Type: Spontaneous
  Country: US (occurrence: US)
  Receive Date: 20210512
  Receipt Date: 20210512
  Transmission Date: 20210717
  Serious: No
  Sender: FDA-Public Use
  Company Number: US-ASTRAZENECA-2021A339421

PATIENT
  Sex: Female
  Weight: 90.7 kg

DRUGS (1)
  1. FASENRA [Suspect]
     Active Substance: BENRALIZUMAB
     Indication: ASTHMA
     Dosage: 30 MG, ONCE EVERY MONTH FOR THREE DOSES, THEN EVERY 8 WEEKS,
     Route: 058
     Dates: start: 20210331

REACTIONS (3)
  - Dyspnoea [Not Recovered/Not Resolved]
  - Asthma [Not Recovered/Not Resolved]
  - Oxygen consumption decreased [Unknown]
